FAERS Safety Report 7022131-2 (Version None)
Quarter: 2010Q3

REPORT INFORMATION
  Report Type: 
  Country: None (occurrence: None)
  Receive Date: 20100930
  Receipt Date: 20100915
  Transmission Date: 20110219
  Serious: Yes (Hospitalization, Other)
  Sender: FDA-Public Use
  Company Number: PHHY2009JP24705

PATIENT
  Age: 19 Year
  Sex: Female

DRUGS (10)
  1. TEGRETOL [Suspect]
     Indication: SCHIZOPHRENIA
     Dosage: 3 DF DAILY
     Route: 048
     Dates: start: 20090409, end: 20090529
  2. VEGETAMIN [Suspect]
     Dosage: 1 DF DAILY
     Route: 048
     Dates: start: 20090326, end: 20090529
  3. RISPERDAL [Concomitant]
     Dosage: 3 DF, UNK
     Route: 048
     Dates: start: 20070101, end: 20090531
  4. LINTON [Concomitant]
     Dosage: 6 DF, UNK
     Route: 048
     Dates: start: 20070101, end: 20090531
  5. LINTON [Concomitant]
     Dosage: 2 DF, UNK
     Route: 048
     Dates: start: 20070101, end: 20090531
  6. SEROQUEL [Concomitant]
     Dosage: 3 DF, UNK
     Route: 048
     Dates: start: 20070101, end: 20090531
  7. WINTERMIN [Concomitant]
     Dosage: 6 DF, UNK
     Dates: start: 20070101, end: 20090531
  8. SEPAZON [Concomitant]
     Dosage: 3 DF, UNK
     Route: 048
  9. CONTOMIN [Concomitant]
     Dosage: UNK
     Route: 048
     Dates: start: 20070101, end: 20090531
  10. PROMETHAZINE HYDROCHLORIDE [Concomitant]
     Dosage: 1 DF, UNK
     Route: 048
     Dates: start: 20070101, end: 20090531

REACTIONS (10)
  - ALANINE AMINOTRANSFERASE INCREASED [None]
  - ASPARTATE AMINOTRANSFERASE INCREASED [None]
  - BLOOD ALKALINE PHOSPHATASE INCREASED [None]
  - BLOOD LACTATE DEHYDROGENASE INCREASED [None]
  - DRUG RASH WITH EOSINOPHILIA AND SYSTEMIC SYMPTOMS [None]
  - GAMMA-GLUTAMYLTRANSFERASE INCREASED [None]
  - GENERALISED ERYTHEMA [None]
  - HEPATIC FUNCTION ABNORMAL [None]
  - RASH [None]
  - TYPE 1 DIABETES MELLITUS [None]
